FAERS Safety Report 5875144-8 (Version None)
Quarter: 2008Q3

REPORT INFORMATION
  Report Type: 
  Country: None (occurrence: None)
  Receive Date: 20080909
  Receipt Date: 20080908
  Transmission Date: 20090109
  Serious: Yes (Other)
  Sender: FDA-Public Use
  Company Number: D0058651A

PATIENT
  Sex: Female

DRUGS (2)
  1. ELONTRIL [Suspect]
     Dosage: 300MG PER DAY
     Route: 048
     Dates: start: 20080724
  2. LITHIUM [Suspect]
     Dosage: 450MG PER DAY
     Route: 048
     Dates: start: 20080724

REACTIONS (2)
  - DRUG INTERACTION [None]
  - RENAL FAILURE ACUTE [None]
